FAERS Safety Report 5662539-0 (Version None)
Quarter: 2008Q1

REPORT INFORMATION
  Report Type: 
  Country: None (occurrence: None)
  Receive Date: 20080220
  Receipt Date: 20070823
  Transmission Date: 20080703
  Serious: Yes (Other)
  Sender: FDA-Public Use
  Company Number: MK-6037260

PATIENT
  Age: 84 Year
  Sex: Male

DRUGS (2)
  1. LOVASTATIN [Suspect]
     Indication: DRUG USE FOR UNKNOWN INDICATION
  2. KETOCONAZOLE [Suspect]
     Indication: PROSTATE CANCER METASTATIC
     Dosage: 400 MG; 3 TIMES A DAY; ORAL
     Route: 048

REACTIONS (3)
  - DRUG INTERACTION [None]
  - HEPATITIS [None]
  - RHABDOMYOLYSIS [None]
